FAERS Safety Report 8413350-9 (Version None)
Quarter: 2012Q2

REPORT INFORMATION
  Report Type: 
  Country: None (occurrence: None)
  Receive Date: 20120605
  Receipt Date: 20120522
  Transmission Date: 20120825
  Serious: No
  Sender: FDA-Public Use
  Company Number: US-ASTRAZENECA-2012SE33384

PATIENT
  Age: 49 Year
  Sex: Female

DRUGS (2)
  1. SEROQUEL [Suspect]
     Route: 048
  2. SYMBICORT [Suspect]
     Dosage: UNKNOWN, UNKNOWN
     Route: 055

REACTIONS (2)
  - DRUG DOSE OMISSION [None]
  - EMPHYSEMA [None]
